FAERS Safety Report 20163691 (Version 1)
Quarter: 2021Q4

REPORT INFORMATION
  Report Type: Spontaneous
  Country: US (occurrence: US)
  Receive Date: 20211209
  Receipt Date: 20211209
  Transmission Date: 20220303
  Serious: No
  Sender: FDA-Public Use
  Company Number: US-JNJFOC-20211138790

PATIENT
  Age: 72 Year
  Sex: Male

DRUGS (2)
  1. REMICADE [Suspect]
     Active Substance: INFLIXIMAB
     Indication: Product used for unknown indication
     Route: 042
  2. CELEBREX [Suspect]
     Active Substance: CELECOXIB
     Indication: Rheumatoid arthritis

REACTIONS (5)
  - Fall [Unknown]
  - Nonspecific reaction [Unknown]
  - Dyspnoea [Unknown]
  - Infusion related reaction [Unknown]
  - Headache [Unknown]
